FAERS Safety Report 5655789-0 (Version None)
Quarter: 2008Q1

REPORT INFORMATION
  Report Type: 
  Country: None (occurrence: None)
  Receive Date: 20080307
  Receipt Date: 20080225
  Transmission Date: 20080703
  Serious: Yes (Other)
  Sender: FDA-Public Use
  Company Number: US-PFIZER INC-2008018404

PATIENT
  Sex: Male
  Weight: 81.818 kg

DRUGS (4)
  1. CHANTIX [Suspect]
     Indication: EX-SMOKER
     Route: 048
     Dates: start: 20080131, end: 20080214
  2. LISINOPRIL [Concomitant]
  3. ADVAIR DISKUS 100/50 [Concomitant]
  4. ALBUTEROL [Concomitant]

REACTIONS (5)
  - HALLUCINATION [None]
  - HYPERSOMNIA [None]
  - INTENTIONAL DRUG MISUSE [None]
  - SHOCK [None]
  - SLEEP DISORDER [None]
